FAERS Safety Report 7185089-1 (Version None)
Quarter: 2010Q4

REPORT INFORMATION
  Report Type: 
  Country: None (occurrence: None)
  Receive Date: 20101222
  Receipt Date: 20101207
  Transmission Date: 20110411
  Serious: No
  Sender: FDA-Public Use
  Company Number: US-B.I. PHARMACEUTICALS,INC./RIDGEFIELD-2010-BP-12679BP

PATIENT
  Sex: Female

DRUGS (14)
  1. SPIRIVA [Suspect]
     Indication: CHRONIC OBSTRUCTIVE PULMONARY DISEASE
     Dosage: 18 MCG
     Route: 055
     Dates: start: 20100701, end: 20100801
  2. SPIRIVA [Suspect]
     Indication: EMPHYSEMA
     Dosage: 18 MCG
     Route: 055
     Dates: start: 20101001
  3. COMBIVENT [Concomitant]
     Indication: CHRONIC OBSTRUCTIVE PULMONARY DISEASE
     Route: 055
     Dates: start: 20100801, end: 20101001
  4. NEXIUM [Concomitant]
     Dosage: 40 MG
  5. LISINOPRIL [Concomitant]
     Dosage: 20 MG
  6. PULMICORT [Concomitant]
     Dosage: 2 PUF
  7. CALCITONIN SALMON [Concomitant]
     Dosage: 200 U
  8. HYDROCHLOROTHIAZIDE [Concomitant]
     Dosage: 12.5 MG
  9. PROPA N/APAP [Concomitant]
  10. ASPIRIN [Concomitant]
  11. ICAPS [Concomitant]
  12. BENADRYL [Concomitant]
     Indication: SEASONAL ALLERGY
  13. CALCIUM [Concomitant]
     Dosage: 1000 MG
  14. MULTI-VITAMIN [Concomitant]

REACTIONS (2)
  - DRY MOUTH [None]
  - DYSGEUSIA [None]
